FAERS Safety Report 7465209-1 (Version None)
Quarter: 2011Q2

REPORT INFORMATION
  Report Type: 
  Country: None (occurrence: None)
  Receive Date: 20110509
  Receipt Date: 20110427
  Transmission Date: 20111010
  Serious: Yes (Other)
  Sender: FDA-Public Use
  Company Number: PHHY2011JP35436

PATIENT
  Sex: Male

DRUGS (5)
  1. TASIGNA [Suspect]
     Indication: CHRONIC MYELOID LEUKAEMIA
     Dosage: 800 MG, UNK
     Route: 048
     Dates: start: 20110113, end: 20110130
  2. ADONA [Concomitant]
     Dosage: 60 MG, UNK
     Route: 048
  3. GLORIAMIN [Concomitant]
     Dosage: 2.0 G, UNK
     Route: 048
  4. TASIGNA [Suspect]
     Dosage: 400 MG, UNK
     Route: 048
     Dates: start: 20110303
  5. MAGNESIUM OXIDE [Concomitant]
     Dosage: 0.5 MG, UNK
     Route: 048

REACTIONS (1)
  - LIVER DISORDER [None]
